FAERS Safety Report 10262483 (Version 1)
Quarter: 2014Q2

REPORT INFORMATION
  Report Type: Spontaneous
  Country: US (occurrence: US)
  Receive Date: 20140626
  Receipt Date: 20140626
  Transmission Date: 20141212
  Serious: No
  Sender: FDA-Public Use
  Company Number: US-PFIZER INC-2014177000

PATIENT
  Sex: Female

DRUGS (2)
  1. LYRICA [Suspect]
     Dosage: 75 MG, 2X/DAY
     Dates: start: 20140621, end: 201406
  2. LYRICA [Suspect]
     Dosage: 150 MG, 2X/DAY
     Dates: start: 201406

REACTIONS (2)
  - Fatigue [Unknown]
  - Somnolence [Unknown]
